FAERS Safety Report 23638588 (Version 1)
Quarter: 2024Q1

REPORT INFORMATION
  Report Type: Report from Study
  Country: US (occurrence: US)
  Receive Date: 20240315
  Receipt Date: 20240315
  Transmission Date: 20240410
  Serious: Yes (Hospitalization)
  Sender: FDA-Public Use
  Company Number: US-PPDUS-2024ST000961

PATIENT
  Age: 66 Year
  Sex: Female

DRUGS (1)
  1. ORSERDU [Suspect]
     Active Substance: ELACESTRANT
     Indication: Product used for unknown indication
     Route: 048
     Dates: start: 20231001, end: 20240307

REACTIONS (1)
  - Blood calcium abnormal [Unknown]

NARRATIVE: CASE EVENT DATE: 20240307
